FAERS Safety Report 23027161 (Version 1)
Quarter: 2023Q4

REPORT INFORMATION
  Report Type: Report from Study
  Country: CA (occurrence: None)
  Receive Date: 20231004
  Receipt Date: 20231004
  Transmission Date: 20240110
  Serious: Yes (Other)
  Sender: FDA-Public Use
  Company Number: CA-PFIZER INC-202300314432

PATIENT
  Age: 55 Year
  Sex: Female

DRUGS (5)
  1. METHOTREXATE [Suspect]
     Active Substance: METHOTREXATE
     Indication: Product used for unknown indication
  2. METHOTREXATE [Suspect]
     Active Substance: METHOTREXATE
  3. ARAVA [Concomitant]
     Active Substance: LEFLUNOMIDE
  4. STELARA [Concomitant]
     Active Substance: USTEKINUMAB
  5. TALTZ [Concomitant]
     Active Substance: IXEKIZUMAB
     Indication: Diabetes mellitus

REACTIONS (8)
  - Drug ineffective [Unknown]
  - Diabetes mellitus [Unknown]
  - Pain [Unknown]
  - Pruritus [Unknown]
  - Psoriasis [Unknown]
  - Psoriatic arthropathy [Unknown]
  - Skin exfoliation [Unknown]
  - Weight decreased [Unknown]
